FAERS Safety Report 9805443 (Version 3)
Quarter: 2014Q1

REPORT INFORMATION
  Report Type: Spontaneous
  Country: US (occurrence: US)
  Receive Date: 20140109
  Receipt Date: 20140314
  Transmission Date: 20141002
  Serious: Yes (Death)
  Sender: FDA-Public Use
  Company Number: US-MERCK-1401USA001064

PATIENT
  Age: 69 Year
  Sex: Female

DRUGS (4)
  1. CASPOFUNGIN ACETATE [Suspect]
     Indication: FUNGAEMIA
  2. PREDNISONE [Concomitant]
     Dosage: 5 MG, QD(DAILY)
  3. MYCOPHENOLATE MOFETIL [Concomitant]
     Dosage: 500 MG, BID
  4. CYCLOSPORINE [Concomitant]
     Dosage: 10 MG, BID

REACTIONS (1)
  - Drug ineffective [Fatal]
